FAERS Safety Report 25867864 (Version 4)
Quarter: 2025Q4

REPORT INFORMATION
  Report Type: Report from Study
  Country: EU (occurrence: EU)
  Receive Date: 20251001
  Receipt Date: 20251023
  Transmission Date: 20260117
  Serious: Yes (Hospitalization, Other)
  Sender: ABBVIE
  Company Number: EU-ABBVIE-6483477

PATIENT
  Age: 76 Year
  Sex: Female

DRUGS (3)
  1. FOSCARBIDOPA\FOSLEVODOPA [Suspect]
     Active Substance: FOSCARBIDOPA\FOSLEVODOPA
     Indication: Parkinson^s disease
     Dosage: ED: 0.2 LR: 0.3 HR: 0.47 BR: 0.45 LLD: 0.8
     Route: 058
     Dates: start: 20241112
  2. FOSCARBIDOPA\FOSLEVODOPA [Suspect]
     Active Substance: FOSCARBIDOPA\FOSLEVODOPA
     Dosage: ED:0.2 LR:0.25 HR:0.47 BR:0.45 LD:0.8
     Route: 058
     Dates: end: 2025
  3. FOSCARBIDOPA\FOSLEVODOPA [Suspect]
     Active Substance: FOSCARBIDOPA\FOSLEVODOPA
     Dosage: REDUCED OVERNIGHT DOSE
     Route: 058
     Dates: start: 2025

REACTIONS (4)
  - Hip fracture [Recovering/Resolving]
  - Fall [Unknown]
  - Confusional state [Unknown]
  - Hallucination [Unknown]

NARRATIVE: CASE EVENT DATE: 20250101
